FAERS Safety Report 10162710 (Version 1)
Quarter: 2014Q2

REPORT INFORMATION
  Report Type: Spontaneous
  Country: BR (occurrence: BR)
  Receive Date: 20140509
  Receipt Date: 20140509
  Transmission Date: 20141212
  Serious: Yes (Other)
  Sender: FDA-Public Use
  Company Number: BR-ASTRAZENECA-2014SE30445

PATIENT
  Age: 788 Month
  Sex: Female

DRUGS (2)
  1. ATACAND HCT [Suspect]
     Indication: HYPERTENSION
     Dosage: 16+12.5MG DAILY
     Route: 048
     Dates: end: 201404
  2. ATENOLOL [Suspect]
     Indication: ARRHYTHMIA
     Route: 048
     Dates: end: 201404

REACTIONS (1)
  - Angina pectoris [Recovered/Resolved]
